FAERS Safety Report 22339684 (Version 1)
Quarter: 2023Q2

REPORT INFORMATION
  Report Type: Other
  Country: US (occurrence: None)
  Receive Date: 20230518
  Receipt Date: 20230518
  Transmission Date: 20230722
  Serious: Yes (Other)
  Sender: FDA-Public Use
  Company Number: US-ROCHE-3351055

PATIENT
  Age: 76 Year
  Sex: Male

DRUGS (4)
  1. ESBRIET [Suspect]
     Active Substance: PIRFENIDONE
     Indication: Bronchiectasis
     Dosage: TAKE 3 TABLET(S) BY MOUTH 3 TIMES A DAY
     Route: 048
  2. ESBRIET [Suspect]
     Active Substance: PIRFENIDONE
     Indication: Idiopathic pulmonary fibrosis
  3. ESBRIET [Suspect]
     Active Substance: PIRFENIDONE
     Indication: Dyspnoea
  4. ESBRIET [Suspect]
     Active Substance: PIRFENIDONE
     Indication: Abnormal loss of weight

REACTIONS (1)
  - Lung neoplasm malignant [Unknown]
